FAERS Safety Report 4691125-4 (Version None)
Quarter: 2005Q2

REPORT INFORMATION
  Report Type: 
  Country: None (occurrence: None)
  Receive Date: 20050610
  Receipt Date: 20050603
  Transmission Date: 20051028
  Serious: Yes (Death)
  Sender: FDA-Public Use
  Company Number: 2005AL002151

PATIENT
  Sex: Female

DRUGS (5)
  1. SERAX [Suspect]
     Dosage: 150 MG;QD; PO
     Route: 048
     Dates: start: 20040420
  2. IVADAL     ({NULL}) [Suspect]
     Dosage: 10 MG;QD; PO
     Route: 048
     Dates: start: 20040419
  3. TRUXAL [Suspect]
     Dosage: 150 MG; QD; PO
     Route: 048
     Dates: start: 20040420
  4. THEOPHYLLINE [Concomitant]
  5. AKINETON [Concomitant]

REACTIONS (2)
  - COR PULMONALE [None]
  - RESPIRATORY DEPRESSION [None]
